FAERS Safety Report 8882418 (Version 2)
Quarter: 2012Q4

REPORT INFORMATION
  Report Type: 
  Country: US (occurrence: US)
  Receive Date: 20121102
  Receipt Date: 20121105
  Transmission Date: 20130627
  Serious: Yes (Other)
  Sender: FDA-Public Use
  Company Number: US-PFIZER INC-2012273490

PATIENT
  Age: 76 Year
  Sex: Male
  Weight: 86.17 kg

DRUGS (5)
  1. LIPITOR [Suspect]
     Indication: HIGH CHOLESTEROL
     Dosage: 10 mg, daily
  2. LIPITOR [Suspect]
     Indication: VENOUS OBSTRUCTION
  3. ATENOLOL [Concomitant]
     Dosage: 50 mg, UNK
  4. HYDROCHLOROTHIAZIDE [Concomitant]
     Dosage: 25 mg, UNK
  5. LISINOPRIL [Concomitant]
     Dosage: 2.5 mg, UNK

REACTIONS (4)
  - Diabetes mellitus [Unknown]
  - Pain in extremity [Unknown]
  - Muscular weakness [Unknown]
  - Joint swelling [Not Recovered/Not Resolved]
